FAERS Safety Report 22300219 (Version 2)
Quarter: 2025Q2

REPORT INFORMATION
  Report Type: Spontaneous
  Country: US (occurrence: US)
  Receive Date: 20230509
  Receipt Date: 20250403
  Transmission Date: 20250716
  Serious: No
  Sender: PFIZER
  Company Number: US-PFIZER INC-PV202300079678

PATIENT
  Age: 57 Year
  Sex: Female

DRUGS (2)
  1. IBRANCE [Suspect]
     Active Substance: PALBOCICLIB
  2. LETROZOLE [Concomitant]
     Active Substance: LETROZOLE

REACTIONS (7)
  - Migraine [Unknown]
  - Fatigue [Unknown]
  - Nausea [Unknown]
  - Taste disorder [Unknown]
  - Arthropathy [Unknown]
  - Influenza [Recovered/Resolved]
  - Product dose omission issue [Unknown]
